FAERS Safety Report 11465423 (Version 1)
Quarter: 2015Q3

REPORT INFORMATION
  Report Type: Report from Study
  Country: US (occurrence: US)
  Receive Date: 20150907
  Receipt Date: 20150907
  Transmission Date: 20151125
  Serious: No
  Sender: FDA-Public Use
  Company Number: PHEH2015US017067

PATIENT
  Sex: Male

DRUGS (1)
  1. AFINITOR [Suspect]
     Active Substance: EVEROLIMUS
     Indication: SOFT TISSUE SARCOMA
     Dosage: 10 MG, QD
     Route: 048
     Dates: start: 20150511

REACTIONS (1)
  - Condition aggravated [Unknown]
